FAERS Safety Report 4547465-2 (Version None)
Quarter: 2005Q1

REPORT INFORMATION
  Report Type: 
  Country: None (occurrence: None)
  Receive Date: 20050107
  Receipt Date: 20041228
  Transmission Date: 20050727
  Serious: Yes (Congenital Anomaly)
  Sender: FDA-Public Use
  Company Number: FI-GLAXOSMITHKLINE-B0363697B

PATIENT
  Sex: Female

DRUGS (6)
  1. LAMOTRIGINE [Suspect]
     Dosage: 125MG PER DAY
  2. DEPAKOTE [Suspect]
  3. KLONOPIN [Suspect]
     Dosage: 1MG PER DAY
  4. NOOTROPIL [Suspect]
     Dosage: 4800MG PER DAY
  5. TOPIMAX [Suspect]
     Dosage: 50MG PER DAY
  6. FOLIC ACID [Suspect]
     Dosage: 1MG PER DAY

REACTIONS (11)
  - CLEFT PALATE [None]
  - CONGENITAL NOSE MALFORMATION [None]
  - DRUG EXPOSURE DURING PREGNANCY [None]
  - EAR MALFORMATION [None]
  - FACIAL DYSMORPHISM [None]
  - FINGER DEFORMITY [None]
  - FOETAL VALPROATE SYNDROME [None]
  - HEAD DEFORMITY [None]
  - MYOCLONUS [None]
  - NEONATAL DISORDER [None]
  - TOE DEFORMITY [None]
